FAERS Safety Report 18736389 (Version 1)
Quarter: 2021Q1

REPORT INFORMATION
  Report Type: Spontaneous
  Country: US (occurrence: US)
  Receive Date: 20210113
  Receipt Date: 20210113
  Transmission Date: 20210419
  Serious: Yes (Other)
  Sender: FDA-Public Use
  Company Number: US-FRESENIUS KABI-FK202100454

PATIENT
  Sex: Female

DRUGS (3)
  1. PYRIDOXINE INJECTION (MANUFACTURER UNKNOWN) [Suspect]
     Active Substance: PYRIDOXINE
     Route: 065
  2. PYRIDOXINE INJECTION (MANUFACTURER UNKNOWN) [Suspect]
     Active Substance: PYRIDOXINE
     Route: 065
  3. PYRIDOXINE INJECTION (MANUFACTURER UNKNOWN) [Suspect]
     Active Substance: PYRIDOXINE
     Indication: CYSTATHIONINE BETA-SYNTHASE DEFICIENCY
     Route: 065

REACTIONS (1)
  - Toxicity to various agents [Recovered/Resolved]
